FAERS Safety Report 23213104 (Version 1)
Quarter: 2023Q4

REPORT INFORMATION
  Report Type: Spontaneous
  Country: None (occurrence: ES)
  Receive Date: 20231121
  Receipt Date: 20231121
  Transmission Date: 20240110
  Serious: Yes (Hospitalization, Other)
  Sender: FDA-Public Use
  Company Number: ES-B.Braun Medical Inc.-2148538

PATIENT
  Sex: Male
  Weight: 73 kg

DRUGS (16)
  1. ACETAMINOPHEN [Suspect]
     Active Substance: ACETAMINOPHEN
  2. UNSPECIFIED INGREDIENT [Suspect]
     Active Substance: UNSPECIFIED INGREDIENT
  3. CARBOPLATIN [Suspect]
     Active Substance: CARBOPLATIN
  4. DOMVANALIMAB [Suspect]
     Active Substance: DOMVANALIMAB
  5. ZIMBERELIMAB [Suspect]
     Active Substance: ZIMBERELIMAB
  6. ESOMEPRAZOLE [Suspect]
     Active Substance: ESOMEPRAZOLE
  7. ALPRAZOLAM [Suspect]
     Active Substance: ALPRAZOLAM
  8. PACLITAXEL [Suspect]
     Active Substance: PACLITAXEL
  9. FUROSEMIDE [Suspect]
     Active Substance: FUROSEMIDE
  10. ENOXAPARIN SODIUM [Suspect]
     Active Substance: ENOXAPARIN SODIUM
  11. METAMIZOLE [Concomitant]
     Active Substance: METAMIZOLE
  12. VALIUM [Concomitant]
     Active Substance: DIAZEPAM
  13. FUROSEMIDE [Concomitant]
     Active Substance: FUROSEMIDE
  14. TRAMADOL [Concomitant]
     Active Substance: TRAMADOL\TRAMADOL HYDROCHLORIDE
  15. IBUPROFEN [Concomitant]
     Active Substance: IBUPROFEN
  16. ONDANSETRON [Concomitant]
     Active Substance: ONDANSETRON

REACTIONS (4)
  - Vomiting [None]
  - Nausea [None]
  - Fatigue [None]
  - Dysphagia [None]
